FAERS Safety Report 8415293-3 (Version None)
Quarter: 2012Q2

REPORT INFORMATION
  Report Type: 
  Country: None (occurrence: None)
  Receive Date: 20120606
  Receipt Date: 20120523
  Transmission Date: 20120825
  Serious: Yes (Hospitalization, Other)
  Sender: FDA-Public Use
  Company Number: TW-RANBAXY-2012RR-56422

PATIENT
  Sex: Female

DRUGS (15)
  1. ZOLPIDEM [Suspect]
     Dosage: 30 MG/DAY IN DIVIDED DOSES
     Route: 048
  2. PAROXETINE [Concomitant]
     Indication: PRODUCT USED FOR UNKNOWN INDICATION
     Dosage: 40 MG, UNK
     Route: 065
  3. QUETIAPINE [Concomitant]
     Dosage: 200 MG, UNK
     Route: 065
  4. ZOLPIDEM [Suspect]
     Dosage: 100 MG, UNK
     Route: 065
  5. FLUNITRAZEPAM [Concomitant]
     Indication: PRODUCT USED FOR UNKNOWN INDICATION
     Dosage: 2 MG, UNK
     Route: 065
  6. ZOLPIDEM [Concomitant]
     Indication: INSOMNIA
     Dosage: 10 MG AT BEDTIME
     Route: 065
  7. QUETIAPINE [Concomitant]
     Dosage: 400 MG, UNK
     Route: 065
  8. ZOLPIDEM [Suspect]
     Indication: ANXIETY
     Dosage: 100-160 MG/DAY
     Route: 065
  9. ZOLPIDEM [Suspect]
     Dosage: 40 MG, QID
     Route: 065
  10. QUETIAPINE [Concomitant]
     Indication: INSOMNIA
     Dosage: 25 MG, UNK
     Route: 065
  11. ZOLPIDEM [Suspect]
     Dosage: 120 MG, UNK
     Route: 065
  12. PAROXETINE [Concomitant]
     Dosage: 60 MG, UNK
  13. FLUNITRAZEPAM [Concomitant]
     Dosage: 2.5 MG, UNK
  14. FLUNITRAZEPAM [Concomitant]
     Dosage: 1 MG, UNK
  15. SERTRALINE HYDROCHLORIDE [Concomitant]
     Indication: PRODUCT USED FOR UNKNOWN INDICATION
     Dosage: 100 MG, UNK
     Route: 065

REACTIONS (7)
  - WITHDRAWAL SYNDROME [None]
  - PALPITATIONS [None]
  - ANXIETY [None]
  - TREMOR [None]
  - IRRITABILITY [None]
  - DRUG DEPENDENCE [None]
  - INSOMNIA [None]
